FAERS Safety Report 8428882-7 (Version None)
Quarter: 2012Q2

REPORT INFORMATION
  Report Type: 
  Country: None (occurrence: None)
  Receive Date: 20120605
  Receipt Date: 20120523
  Transmission Date: 20120825
  Serious: Yes (Hospitalization)
  Sender: FDA-Public Use
  Company Number: 12US004385

PATIENT
  Age: 14 Year
  Sex: Male
  Weight: 82.5 kg

DRUGS (3)
  1. NAPROXEN (ALEVE) [Concomitant]
  2. CLINDAMYCIN PHOSPHATE AND BENZOYL PEROXIDE [Suspect]
     Indication: ACNE
     Dosage: 1 APPLICATION, DAILY, TOPICAL
     Route: 061
     Dates: start: 20120417, end: 20120507
  3. BENADRYL [Concomitant]

REACTIONS (1)
  - ANGER [None]
